FAERS Safety Report 6098875-6 (Version None)
Quarter: 2009Q1

REPORT INFORMATION
  Report Type: 
  Country: None (occurrence: None)
  Receive Date: 20090302
  Receipt Date: 20090223
  Transmission Date: 20090719
  Serious: Yes (Hospitalization)
  Sender: FDA-Public Use
  Company Number: B0561157A

PATIENT
  Sex: Female

DRUGS (2)
  1. TYVERB [Suspect]
     Route: 065
  2. STEROIDS [Concomitant]

REACTIONS (2)
  - OEDEMA [None]
  - URTICARIA [None]
